FAERS Safety Report 7989266-9 (Version None)
Quarter: 2011Q4

REPORT INFORMATION
  Report Type: 
  Country: None (occurrence: None)
  Receive Date: 20111219
  Receipt Date: 20111206
  Transmission Date: 20120403
  Serious: Yes (Hospitalization)
  Sender: FDA-Public Use
  Company Number: FR-JNJFOC-20111203699

PATIENT
  Sex: Female
  Weight: 44.2 kg

DRUGS (4)
  1. CODEINE PHOSPHATE [Concomitant]
  2. AZATHIOPRINE [Concomitant]
     Indication: CROHN'S DISEASE
  3. SACCHAROMYCES BOULARDII [Concomitant]
  4. REMICADE [Suspect]
     Indication: CROHN'S DISEASE
     Route: 042
     Dates: start: 20100628

REACTIONS (1)
  - COLONIC POLYP [None]
